FAERS Safety Report 12322056 (Version 1)
Quarter: 2016Q2

REPORT INFORMATION
  Report Type: Report from Study
  Country: JP (occurrence: JP)
  Receive Date: 20160502
  Receipt Date: 20160502
  Transmission Date: 20160815
  Serious: Yes (Death, Hospitalization, Other)
  Sender: FDA-Public Use
  Company Number: JP-CELGENEUS-JPN-2015103551

PATIENT
  Age: 71 Year
  Sex: Female

DRUGS (9)
  1. AMLODIPINE [Concomitant]
     Active Substance: AMLODIPINE BESYLATE
     Indication: PRODUCT USED FOR UNKNOWN INDICATION
     Route: 048
  2. LENADEX [Suspect]
     Active Substance: DEXAMETHASONE ACETATE
     Indication: PLASMA CELL MYELOMA RECURRENT
     Route: 048
     Dates: start: 20150605, end: 20150626
  3. BAKTAR [Concomitant]
     Active Substance: SULFAMETHOXAZOLE\TRIMETHOPRIM
     Indication: PROPHYLAXIS
     Route: 048
  4. METHYCOBAL [Concomitant]
     Active Substance: METHYLCOBALAMIN
     Indication: PLASMA CELL MYELOMA RECURRENT
     Route: 048
  5. MYSLEE [Concomitant]
     Active Substance: ZOLPIDEM TARTRATE
     Indication: PRODUCT USED FOR UNKNOWN INDICATION
     Route: 048
  6. BENET [Concomitant]
     Active Substance: RISEDRONATE SODIUM
     Indication: PRODUCT USED FOR UNKNOWN INDICATION
     Route: 048
  7. VALACICLOVIR HYDROCHLORIDE [Concomitant]
     Active Substance: VALACYCLOVIR HYDROCHLORIDE
     Indication: PROPHYLAXIS
     Dosage: 20 MILLIGRAM
     Route: 048
  8. POMALYST [Suspect]
     Active Substance: POMALIDOMIDE
     Indication: PLASMA CELL MYELOMA RECURRENT
     Dosage: 4 MILLIGRAM
     Route: 048
     Dates: start: 20150605, end: 20150619
  9. FEBURIC [Concomitant]
     Active Substance: FEBUXOSTAT
     Indication: PRODUCT USED FOR UNKNOWN INDICATION
     Route: 048

REACTIONS (8)
  - Plasma cell myeloma [Fatal]
  - Aspartate aminotransferase increased [Unknown]
  - Neutrophil count decreased [Recovering/Resolving]
  - Platelet count decreased [Recovering/Resolving]
  - White blood cell count decreased [Not Recovered/Not Resolved]
  - Sepsis [Fatal]
  - Infection [Recovering/Resolving]
  - Blood bilirubin increased [Unknown]

NARRATIVE: CASE EVENT DATE: 2015
